FAERS Safety Report 15083012 (Version 1)
Quarter: 2018Q2

REPORT INFORMATION
  Report Type: Spontaneous
  Country: US (occurrence: US)
  Receive Date: 20180607
  Receipt Date: 20180607
  Transmission Date: 20180711
  Serious: No
  Sender: FDA-Public Use
  Company Number: None

PATIENT

DRUGS (4)
  1. CEFUROXIME, 10 MG/ML [Suspect]
     Active Substance: CEFUROXIME SODIUM
     Indication: PROPHYLAXIS
     Route: 031
     Dates: start: 20180111, end: 20180111
  2. LIDOCAINE 1% PFLPHENYLEPHRINE 1.5% PF [Suspect]
     Active Substance: LIDOCAINE\PHENYLEPHRINE
     Indication: ANAESTHESIA PROCEDURE
     Route: 031
     Dates: start: 20180111, end: 20180111
  3. LIDOCAINE 1% PFLPHENYLEPHRINE 1.5% PF [Suspect]
     Active Substance: LIDOCAINE\PHENYLEPHRINE
     Indication: PUPIL DILATION PROCEDURE
     Route: 031
     Dates: start: 20180111, end: 20180111
  4. DUREZOL [Concomitant]
     Active Substance: DIFLUPREDNATE

REACTIONS (1)
  - Toxic anterior segment syndrome [None]

NARRATIVE: CASE EVENT DATE: 20180111
